FAERS Safety Report 9201221 (Version 2)
Quarter: 2013Q1

REPORT INFORMATION
  Report Type: Spontaneous
  Country: US (occurrence: None)
  Receive Date: 20130327
  Receipt Date: 20130327
  Transmission Date: 20140127
  Serious: Yes (Other)
  Sender: FDA-Public Use
  Company Number: IPC201303-000094

PATIENT
  Age: 43 Year
  Sex: Male

DRUGS (2)
  1. HYDROXYCHLOROQUINE SULFATE (HYDROXYCHLOROQUINE SULFATE) (HYDROXYCHLOROQUINE SULFATE) [Suspect]
  2. PREDNISONE [Suspect]
     Dosage: TREATED WITH INCREASING DOSES

REACTIONS (8)
  - Sarcoidosis [None]
  - No therapeutic response [None]
  - Weight increased [None]
  - Hypertension [None]
  - Diabetes mellitus [None]
  - Skin lesion [None]
  - Foot fracture [None]
  - Condition aggravated [None]
